FAERS Safety Report 9247872 (Version 1)
Quarter: 2013Q2

REPORT INFORMATION
  Report Type: Spontaneous
  Country: US (occurrence: US)
  Receive Date: 20130423
  Receipt Date: 20130423
  Transmission Date: 20140414
  Serious: No
  Sender: FDA-Public Use
  Company Number: US-009507513-1304USA008626

PATIENT
  Age: 37 Year
  Sex: Female
  Weight: 81.18 kg

DRUGS (2)
  1. IMPLANON [Suspect]
     Indication: CONTRACEPTION
     Dosage: 1 ROD, UNK
     Dates: start: 201004
  2. METFORMIN [Concomitant]

REACTIONS (4)
  - Weight increased [Unknown]
  - Complication of device removal [Unknown]
  - Medical device complication [Unknown]
  - Expired drug administered [Unknown]
